FAERS Safety Report 6057189-0 (Version None)
Quarter: 2009Q1

REPORT INFORMATION
  Report Type: 
  Country: None (occurrence: None)
  Receive Date: 20090129
  Receipt Date: 20080226
  Transmission Date: 20090719
  Serious: No
  Sender: FDA-Public Use
  Company Number: A0711961A

PATIENT
  Age: 68 Year
  Sex: Male

DRUGS (2)
  1. WELLBUTRIN [Suspect]
     Indication: DEPRESSION
     Dosage: 75MG TWICE PER DAY
     Route: 048
     Dates: start: 20071101
  2. NO CONCURRENT MEDICATION [Concomitant]

REACTIONS (3)
  - FLATULENCE [None]
  - OESOPHAGITIS [None]
  - SENSATION OF FOREIGN BODY [None]
